FAERS Safety Report 7352998-X (Version None)
Quarter: 2011Q1

REPORT INFORMATION
  Report Type: 
  Country: None (occurrence: None)
  Receive Date: 20110315
  Receipt Date: 20101119
  Transmission Date: 20110831
  Serious: Yes (Other)
  Sender: FDA-Public Use
  Company Number: A0896984A

PATIENT
  Age: 44 Year
  Sex: Female

DRUGS (1)
  1. AVANDIA [Suspect]
     Dosage: 4MG TWICE PER DAY
     Route: 048
     Dates: start: 20010917, end: 20051221

REACTIONS (4)
  - ARRHYTHMIA [None]
  - CARDIOMYOPATHY [None]
  - HEART RATE IRREGULAR [None]
  - CARDIOVASCULAR DISORDER [None]
